FAERS Safety Report 9293322 (Version 1)
Quarter: 2013Q2

REPORT INFORMATION
  Report Type: Report from Study
  Country: TW (occurrence: TW)
  Receive Date: 20130516
  Receipt Date: 20130516
  Transmission Date: 20140414
  Serious: Yes (Death, Hospitalization)
  Sender: FDA-Public Use
  Company Number: PHHY2009TW54697

PATIENT
  Age: 74 Year
  Sex: Male
  Weight: 73.1 kg

DRUGS (4)
  1. ICL670A [Suspect]
     Indication: IRON OVERLOAD
     Dosage: 1400 MG/DAY
  2. BUMETANIDE [Concomitant]
     Route: 042
  3. DIURETICS [Concomitant]
  4. ALBUMIN [Concomitant]

REACTIONS (8)
  - Death [Fatal]
  - Nephrotic syndrome [Recovering/Resolving]
  - Proteinuria [Recovering/Resolving]
  - Protein total decreased [Recovering/Resolving]
  - Oedema peripheral [Recovering/Resolving]
  - Weight decreased [Recovering/Resolving]
  - Wheezing [Recovering/Resolving]
  - Cough [Recovering/Resolving]
